FAERS Safety Report 13854550 (Version 2)
Quarter: 2017Q3

REPORT INFORMATION
  Report Type: Report from Study
  Country: CA (occurrence: CA)
  Receive Date: 20170809
  Receipt Date: 20170825
  Transmission Date: 20171127
  Serious: Yes (Other)
  Sender: FDA-Public Use
  Company Number: CA-HLSUS-2017-CA-000687

PATIENT
  Age: 36 Year
  Sex: Male
  Weight: 109.32 kg

DRUGS (1)
  1. CLOZARIL [Suspect]
     Active Substance: CLOZAPINE
     Dosage: 450 MG DAILY
     Route: 048
     Dates: start: 20160819, end: 20170717

REACTIONS (4)
  - Gastrooesophageal reflux disease [Recovered/Resolved]
  - Sedation [Recovered/Resolved]
  - Sexual dysfunction [Unknown]
  - Weight increased [Unknown]

NARRATIVE: CASE EVENT DATE: 201707
